FAERS Safety Report 6519598-2 (Version None)
Quarter: 2009Q4

REPORT INFORMATION
  Report Type: 
  Country: None (occurrence: None)
  Receive Date: 20091228
  Receipt Date: 20091214
  Transmission Date: 20100525
  Serious: Yes (Hospitalization)
  Sender: FDA-Public Use
  Company Number: US-MYLANLABS-2009S1021339

PATIENT
  Age: 3 Year
  Sex: Male
  Weight: 19 kg

DRUGS (2)
  1. CLONIDINE [Suspect]
     Indication: SLEEP TERROR
  2. VALPROIC ACID [Concomitant]
     Indication: CONVULSION
     Dosage: 125MG EVERY MORNING AND 250MG AT NIGHT

REACTIONS (10)
  - ACCIDENTAL OVERDOSE [None]
  - AGITATION [None]
  - DEPRESSED LEVEL OF CONSCIOUSNESS [None]
  - DRY MOUTH [None]
  - DYSPNOEA [None]
  - IRRITABILITY [None]
  - MIOSIS [None]
  - PRODUCT COMPOUNDING QUALITY ISSUE [None]
  - SINUS BRADYCARDIA [None]
  - SOMNOLENCE [None]
